FAERS Safety Report 8151283-6 (Version None)
Quarter: 2012Q1

REPORT INFORMATION
  Report Type: 
  Country: None (occurrence: None)
  Receive Date: 20120220
  Receipt Date: 20120209
  Transmission Date: 20120608
  Serious: Yes (Hospitalization)
  Sender: FDA-Public Use
  Company Number: JP-ASTRAZENECA-2011SE75166

PATIENT
  Age: 75 Year
  Sex: Male
  Weight: 76 kg

DRUGS (6)
  1. LOSARTAN POTASSIUM AND HYDROCHLOROTHIAZIDE [Suspect]
     Indication: HYPERTENSION
     Route: 048
     Dates: end: 20111205
  2. PRORENAL [Suspect]
     Indication: LUMBAR SPINAL STENOSIS
     Route: 048
     Dates: start: 20071219, end: 20111123
  3. CLEANAL [Concomitant]
     Indication: CHRONIC OBSTRUCTIVE PULMONARY DISEASE
     Route: 048
     Dates: start: 20100511
  4. SYMBICORT [Suspect]
     Indication: ASTHMA
     Dosage: 2 DF TWO TIMES A DAY
     Route: 055
     Dates: start: 20101207
  5. INDERAL [Suspect]
     Indication: HYPERTENSION
     Route: 048
     Dates: end: 20111205
  6. AMITRIPTYLINE HCL [Concomitant]
     Indication: LUMBAR SPINAL STENOSIS
     Route: 048

REACTIONS (1)
  - LUNG DISORDER [None]
